FAERS Safety Report 5317522-1 (Version None)
Quarter: 2007Q2

REPORT INFORMATION
  Report Type: 
  Country: None (occurrence: None)
  Receive Date: 20070507
  Receipt Date: 20070425
  Transmission Date: 20071010
  Serious: Yes (Other)
  Sender: FDA-Public Use
  Company Number: PHEH2007US05074

PATIENT
  Age: 50 Year
  Sex: Female

DRUGS (5)
  1. ZELNORM [Suspect]
     Indication: IMPAIRED GASTRIC EMPTYING
     Dosage: 6 MG, TID
     Route: 048
     Dates: start: 20020101, end: 20070410
  2. NEXIUM [Concomitant]
     Dosage: UNK, UNK
  3. PAMELOR [Concomitant]
     Dosage: UNK, UNK
  4. CARDIZEM [Concomitant]
     Indication: HYPERTENSION
     Dosage: UNK, UNK
  5. ERYTHROMYCIN [Concomitant]
     Indication: PROPHYLAXIS
     Dosage: TAKES PRIOR TO EVERY MEAL
     Route: 048

REACTIONS (7)
  - COMPUTERISED TOMOGRAM ABNORMAL [None]
  - FEELING ABNORMAL [None]
  - GAIT DISTURBANCE [None]
  - MIGRAINE [None]
  - MUSCULAR WEAKNESS [None]
  - NUCLEAR MAGNETIC RESONANCE IMAGING ABNORMAL [None]
  - TRANSIENT ISCHAEMIC ATTACK [None]
